FAERS Safety Report 11522002 (Version 1)
Quarter: 2015Q3

REPORT INFORMATION
  Report Type: Spontaneous
  Country: US (occurrence: US)
  Receive Date: 20150903
  Receipt Date: 20150903
  Transmission Date: 20151125
  Serious: No
  Sender: FDA-Public Use
  Company Number: US-ELI_LILLY_AND_COMPANY-US201004004362

PATIENT
  Age: 63 Year
  Sex: Female

DRUGS (6)
  1. HUMALOG MIX75/25 [Suspect]
     Active Substance: INSULIN LISPRO
     Dates: start: 200904, end: 200910
  2. HUMALOG MIX75/25 [Suspect]
     Active Substance: INSULIN LISPRO
     Dates: start: 200904, end: 200910
  3. HUMALOG MIX75/25 [Suspect]
     Active Substance: INSULIN LISPRO
     Indication: DIABETES MELLITUS
     Dosage: 85 U, DAILY (1/D)
     Dates: start: 200910
  4. HUMALOG MIX75/25 [Suspect]
     Active Substance: INSULIN LISPRO
     Dosage: 60 U, DAILY (1/D)
     Dates: start: 200910
  5. HUMALOG MIX75/25 [Suspect]
     Active Substance: INSULIN LISPRO
     Dosage: 100 U, DAILY (1/D)
     Dates: start: 200910
  6. HUMALOG MIX75/25 [Suspect]
     Active Substance: INSULIN LISPRO
     Dates: start: 200904, end: 200910

REACTIONS (15)
  - Visual impairment [Unknown]
  - Headache [Unknown]
  - Abdominal infection [Unknown]
  - Abdominal discomfort [Unknown]
  - Abnormal behaviour [Unknown]
  - Feeling abnormal [Unknown]
  - Vomiting [Recovered/Resolved]
  - Mood altered [Unknown]
  - Drug hypersensitivity [Unknown]
  - Drug dose omission [Recovered/Resolved]
  - Heart rate increased [Unknown]
  - Disturbance in attention [Unknown]
  - Confusional state [Unknown]
  - Infection [Unknown]
  - Somnolence [Unknown]

NARRATIVE: CASE EVENT DATE: 20100401
